FAERS Safety Report 14355393 (Version 2)
Quarter: 2020Q1

REPORT INFORMATION
  Report Type: Report from Study
  Country: BR (occurrence: BR)
  Receive Date: 20180105
  Receipt Date: 20200113
  Transmission Date: 20200409
  Serious: Yes (Hospitalization)
  Sender: FDA-Public Use
  Company Number: PHHY2018BR000841

PATIENT
  Age: 75 Year
  Sex: Male
  Weight: 62.5 kg

DRUGS (4)
  1. ACLASTA [Suspect]
     Active Substance: ZOLEDRONIC ACID
     Dosage: UNK
     Route: 042
     Dates: start: 2016
  2. ACLASTA [Suspect]
     Active Substance: ZOLEDRONIC ACID
     Dosage: UNK
     Route: 042
     Dates: start: 2017
  3. ACLASTA [Suspect]
     Active Substance: ZOLEDRONIC ACID
     Dosage: UNK, EACH 5 YEARS
     Route: 065
  4. ACLASTA [Suspect]
     Active Substance: ZOLEDRONIC ACID
     Indication: OSTEOPOROSIS
     Dosage: UNK, Q12MO
     Route: 042
     Dates: start: 2015

REACTIONS (5)
  - Lymph gland infection [Recovered/Resolved]
  - Prostatic disorder [Recovered/Resolved]
  - Condition aggravated [Unknown]
  - Inappropriate schedule of product administration [Unknown]
  - Osteoporosis [Unknown]

NARRATIVE: CASE EVENT DATE: 201912
